FAERS Safety Report 21242991 (Version 1)
Quarter: 2022Q3

REPORT INFORMATION
  Report Type: Spontaneous
  Country: CN (occurrence: CN)
  Receive Date: 20220823
  Receipt Date: 20220823
  Transmission Date: 20221027
  Serious: Yes (Other)
  Sender: FDA-Public Use
  Company Number: CN-BoehringerIngelheim-2022-BI-186569

PATIENT
  Age: 72 Year
  Sex: Male

DRUGS (1)
  1. ALTEPLASE [Suspect]
     Active Substance: ALTEPLASE
     Indication: Thrombolysis
     Route: 042

REACTIONS (5)
  - Vertebral artery occlusion [Recovering/Resolving]
  - Cerebral artery occlusion [Recovering/Resolving]
  - Speech disorder [Recovering/Resolving]
  - Basilar artery stenosis [Recovering/Resolving]
  - Off label use [Unknown]
